FAERS Safety Report 24127208 (Version 1)
Quarter: 2024Q3

REPORT INFORMATION
  Report Type: Report from Study
  Country: US (occurrence: US)
  Receive Date: 20240723
  Receipt Date: 20240723
  Transmission Date: 20241016
  Serious: Yes (Other)
  Sender: JOHNSON AND JOHNSON
  Company Number: US-JNJFOC-20240752162

PATIENT
  Age: 91 Year
  Sex: Female

DRUGS (29)
  1. DARZALEX [Suspect]
     Active Substance: DARATUMUMAB
     Indication: Plasma cell myeloma
     Route: 065
  2. ACYCLOVIR [Concomitant]
     Active Substance: ACYCLOVIR
  3. ARNUITY ELLIPTA [Concomitant]
     Active Substance: FLUTICASONE FUROATE
  4. ASPIRIN [Concomitant]
     Active Substance: ASPIRIN
  5. VITAMIN B12 [Concomitant]
     Active Substance: CYANOCOBALAMIN
  6. CALCIUM\CHOLECALCIFEROL [Concomitant]
     Active Substance: CALCIUM\CHOLECALCIFEROL
  7. CLONIDINE [Concomitant]
     Active Substance: CLONIDINE
  8. PROCHLORPERAZINE [Concomitant]
     Active Substance: PROCHLORPERAZINE
  9. DECADRON [Concomitant]
     Active Substance: DEXAMETHASONE
  10. EPIPEN [Concomitant]
     Active Substance: EPINEPHRINE
  11. FLUTICASONE [Concomitant]
     Active Substance: FLUTICASONE
  12. FOSAMAX [Concomitant]
     Active Substance: ALENDRONATE SODIUM
  13. HYDRALAZINE [Concomitant]
     Active Substance: HYDRALAZINE HYDROCHLORIDE
  14. HYDROCORTISONE [Concomitant]
     Active Substance: HYDROCORTISONE\HYDROCORTISONE ACETATE
  15. LENALIDOMIDE [Concomitant]
     Active Substance: LENALIDOMIDE
  16. LEVOTHYROXINE [Concomitant]
     Active Substance: LEVOTHYROXINE\LEVOTHYROXINE SODIUM
  17. MENTHOL [Concomitant]
     Active Substance: MENTHOL
  18. VITAMINS [Concomitant]
     Active Substance: VITAMINS
  19. NIFEDIPINE [Concomitant]
     Active Substance: NIFEDIPINE
  20. PANTOPRAZOLE [Concomitant]
     Active Substance: PANTOPRAZOLE
  21. PRAVASTATIN [Concomitant]
     Active Substance: PRAVASTATIN
  22. PROAIR HFA [Concomitant]
     Active Substance: ALBUTEROL SULFATE
  23. SERTRALINE [Concomitant]
     Active Substance: SERTRALINE HYDROCHLORIDE
  24. SYMBICORT [Concomitant]
     Active Substance: BUDESONIDE\FORMOTEROL FUMARATE DIHYDRATE
  25. TESSALON [Concomitant]
     Active Substance: BENZONATATE
  26. TYLENOL [Concomitant]
     Active Substance: ACETAMINOPHEN
  27. VENTOLIN [Concomitant]
     Active Substance: ALBUTEROL SULFATE
  28. VITAMIN C [Concomitant]
     Active Substance: ASCORBIC ACID
  29. XOLAIR [Concomitant]
     Active Substance: OMALIZUMAB

REACTIONS (1)
  - Adverse event [Unknown]
